FAERS Safety Report 6033404-4 (Version None)
Quarter: 2009Q1

REPORT INFORMATION
  Report Type: 
  Country: None (occurrence: None)
  Receive Date: 20090109
  Receipt Date: 20090107
  Transmission Date: 20090719
  Serious: Yes (Death, Other)
  Sender: FDA-Public Use
  Company Number: FR-AMGEN-UK264016

PATIENT
  Sex: Female

DRUGS (1)
  1. ARANESP [Suspect]
     Indication: ANAEMIA OF MALIGNANT DISEASE
     Route: 065
     Dates: start: 20080105

REACTIONS (2)
  - DEATH [None]
  - INJECTION SITE PAIN [None]
